FAERS Safety Report 7931941-6 (Version None)
Quarter: 2011Q4

REPORT INFORMATION
  Report Type: 
  Country: None (occurrence: None)
  Receive Date: 20111121
  Receipt Date: 20111114
  Transmission Date: 20120403
  Serious: Yes (Other)
  Sender: FDA-Public Use
  Company Number: US-US-EMD SERONO, INC.-7096367

PATIENT
  Sex: Female

DRUGS (6)
  1. IBUPROFEN [Concomitant]
     Indication: PREMEDICATION
  2. REBIF [Suspect]
  3. REBIF [Suspect]
     Indication: MULTIPLE SCLEROSIS
     Dates: end: 20080101
  4. REBIF [Suspect]
     Dates: end: 20100101
  5. ACETAMINOPHEN [Concomitant]
     Indication: PREMEDICATION
  6. REBIF [Suspect]
     Route: 058
     Dates: start: 20111108

REACTIONS (1)
  - HEADACHE [None]
